FAERS Safety Report 10156941 (Version 1)
Quarter: 2014Q2

REPORT INFORMATION
  Report Type: Spontaneous
  Country: US (occurrence: None)
  Receive Date: 20140506
  Receipt Date: 20140506
  Transmission Date: 20141212
  Serious: Yes (Other)
  Sender: FDA-Public Use
  Company Number: None

PATIENT
  Age: 46 Year
  Sex: Male
  Weight: 90.72 kg

DRUGS (3)
  1. LOVASTATIN [Suspect]
     Indication: BLOOD CHOLESTEROL INCREASED
     Dates: start: 20140401, end: 20140422
  2. JANUMET XR [Concomitant]
  3. LOVAZA [Concomitant]

REACTIONS (8)
  - Diarrhoea [None]
  - Vomiting [None]
  - Abdominal pain upper [None]
  - Cold sweat [None]
  - Eructation [None]
  - Retching [None]
  - Dizziness [None]
  - Asthenia [None]
